FAERS Safety Report 9566191 (Version 4)
Quarter: 2015Q1

REPORT INFORMATION
  Report Type: Spontaneous
  Country: US (occurrence: US)
  Receive Date: 20130930
  Receipt Date: 20150319
  Transmission Date: 20150721
  Serious: No
  Sender: FDA-Public Use
  Company Number: US-ASTRAZENECA-2013SE61194

PATIENT
  Age: 57 Year
  Sex: Female
  Weight: 58.5 kg

DRUGS (16)
  1. PANTOPROZOLE [Concomitant]
     Indication: GASTROOESOPHAGEAL REFLUX DISEASE
  2. PANTOPROZOLE [Concomitant]
     Indication: GASTROOESOPHAGEAL REFLUX DISEASE
     Route: 048
  3. NICIAMIDE [Concomitant]
  4. VITAMIN D [Concomitant]
     Active Substance: CHOLECALCIFEROL
     Dosage: DAILY
  5. PANTOPROZOLE [Concomitant]
     Indication: GASTROOESOPHAGEAL REFLUX DISEASE
  6. FLUCO NASAL [Concomitant]
     Indication: FUNGAL INFECTION
  7. PROBIOTICS [Concomitant]
     Active Substance: PROBIOTICS NOS
     Dosage: DAILY
  8. PINDOLOL. [Concomitant]
     Active Substance: PINDOLOL
     Indication: CARDIOVASCULAR DISORDER
     Route: 065
  9. ASPIRIN. [Concomitant]
     Active Substance: ASPIRIN
     Indication: SUPPLEMENTATION THERAPY
     Route: 048
  10. SUCRALFATE DRINK [Concomitant]
  11. BRILINTA [Suspect]
     Active Substance: TICAGRELOR
     Indication: STENT PLACEMENT
     Route: 048
     Dates: start: 20130619
  12. PANTOPROZOLE [Concomitant]
     Indication: GASTROOESOPHAGEAL REFLUX DISEASE
  13. COQ10 [Concomitant]
     Active Substance: UBIDECARENONE
  14. BRILINTA [Suspect]
     Active Substance: TICAGRELOR
     Indication: STENT PLACEMENT
     Route: 048
     Dates: start: 20150130
  15. PANTOPROZOLE [Concomitant]
     Indication: GASTROOESOPHAGEAL REFLUX DISEASE
     Route: 048
  16. MULTIVITAMIN [Concomitant]
     Active Substance: VITAMINS

REACTIONS (13)
  - Cyanosis [Unknown]
  - Epistaxis [Recovered/Resolved]
  - Hypertension [Unknown]
  - Memory impairment [Not Recovered/Not Resolved]
  - Rosacea [Unknown]
  - Vitamin D decreased [Unknown]
  - Dyspnoea exertional [Not Recovered/Not Resolved]
  - Confusional state [Not Recovered/Not Resolved]
  - Increased tendency to bruise [Not Recovered/Not Resolved]
  - Mental impairment [Not Recovered/Not Resolved]
  - Nausea [Recovered/Resolved]
  - Gastrooesophageal reflux disease [Unknown]
  - Pallor [Unknown]

NARRATIVE: CASE EVENT DATE: 2013
